FAERS Safety Report 19554707 (Version 1)
Quarter: 2021Q3

REPORT INFORMATION
  Report Type: Spontaneous
  Country: DE (occurrence: DE)
  Receive Date: 20210714
  Receipt Date: 20210714
  Transmission Date: 20211014
  Serious: Yes (Life-Threatening, Hospitalization, Other)
  Sender: FDA-Public Use
  Company Number: DE-BAXTER-2021BAX019541

PATIENT
  Age: 40 Year
  Sex: Female
  Weight: 100 kg

DRUGS (84)
  1. IBUPROFEN. [Suspect]
     Active Substance: IBUPROFEN
     Indication: PRODUCT USED FOR UNKNOWN INDICATION
     Route: 065
  2. VALSARTAN/HYDROCHLORTHIAZID [Suspect]
     Active Substance: HYDROCHLOROTHIAZIDE\VALSARTAN
     Indication: HYPERTENSION
     Route: 065
     Dates: start: 20140707, end: 201410
  3. VALSARTAN/HYDROCHLORTHIAZID [Suspect]
     Active Substance: HYDROCHLOROTHIAZIDE\VALSARTAN
     Route: 065
     Dates: start: 20140707
  4. VALSARTAN HEXAL COMP [Suspect]
     Active Substance: HYDROCHLOROTHIAZIDE\VALSARTAN
     Route: 065
     Dates: start: 20160804
  5. VALSARTAN HEXAL COMP [Suspect]
     Active Substance: HYDROCHLOROTHIAZIDE\VALSARTAN
     Route: 065
     Dates: start: 20150412
  6. VINBLASTINE [Suspect]
     Active Substance: VINBLASTINE
     Indication: HODGKIN^S DISEASE
     Dosage: DAY 1 AND DAY 15
     Route: 065
     Dates: start: 20151027, end: 201512
  7. BLEOMYCIN [Suspect]
     Active Substance: BLEOMYCIN SULFATE
     Indication: HODGKIN^S DISEASE
     Dosage: DAY 1 AND DAY 15
     Route: 065
     Dates: start: 20151027, end: 201512
  8. DICLOFENAC [Suspect]
     Active Substance: DICLOFENAC
     Indication: PRODUCT USED FOR UNKNOWN INDICATION
     Route: 065
  9. ETOPOSIDE. [Suspect]
     Active Substance: ETOPOSIDE
     Indication: HODGKIN^S DISEASE
     Route: 065
     Dates: start: 20160113
  10. GRANOCYTE [Suspect]
     Active Substance: LENOGRASTIM
     Route: 065
     Dates: start: 201511
  11. MOTILIUM [Concomitant]
     Active Substance: DOMPERIDONE
     Indication: PRODUCT USED FOR UNKNOWN INDICATION
     Dosage: 1 DF, SACHET, 4X DAILY (1 DOSAGE FORMS,4 IN 1 D)
     Route: 065
  12. MOVICOL [Concomitant]
     Active Substance: POLYETHYLENE GLYCOL 3350\POTASSIUM CHLORIDE\SODIUM BICARBONATE\SODIUM CHLORIDE
     Indication: PRODUCT USED FOR UNKNOWN INDICATION
     Dosage: 1 DF, SACHET, 1X IF NEEDED (1 DOSAGE FORMS)
     Route: 065
  13. VALSARTAN HEXAL COMP [Suspect]
     Active Substance: HYDROCHLOROTHIAZIDE\VALSARTAN
     Route: 065
     Dates: start: 20141014
  14. BLEOMYCIN [Suspect]
     Active Substance: BLEOMYCIN SULFATE
     Dosage: DAY 8
     Route: 065
     Dates: start: 20160120
  15. DACARBAZINE. [Suspect]
     Active Substance: DACARBAZINE
     Indication: HODGKIN^S DISEASE
     Dosage: DAY 1 AND DAY 15 (375 MG/M2)
     Route: 065
     Dates: start: 20151027, end: 201512
  16. ACETYLSALICYLIC ACID [Suspect]
     Active Substance: ASPIRIN
     Indication: PRODUCT USED FOR UNKNOWN INDICATION
     Route: 065
  17. DIAZEPAM. [Suspect]
     Active Substance: DIAZEPAM
     Indication: BACK PAIN
     Route: 065
     Dates: start: 20150608
  18. NEULASTA [Suspect]
     Active Substance: PEGFILGRASTIM
     Indication: NEUTROPENIA
     Route: 058
     Dates: start: 20151212, end: 20151212
  19. TRANXILIUM [Concomitant]
     Active Substance: CLORAZEPATE DIPOTASSIUM
     Dosage: 1X 10 MG, QD, 1X DAILY (MORNING) (10 MG,1 IN 1 D)
     Route: 065
  20. MOVICOLON [Concomitant]
     Active Substance: POLYETHYLENE GLYCOL 3350\POTASSIUM CHLORIDE\SODIUM BICARBONATE\SODIUM CHLORIDE
     Dosage: (1 DOSAGE FORMS,1 AS REQUIRED)
     Route: 065
  21. DOXIL [Suspect]
     Active Substance: DOXORUBICIN HYDROCHLORIDE
     Dosage: DAY1
     Route: 065
     Dates: start: 20160113
  22. VALSARTAN HEXAL COMP [Suspect]
     Active Substance: HYDROCHLOROTHIAZIDE\VALSARTAN
     Route: 065
     Dates: start: 20170112
  23. PREDNISOLONE. [Suspect]
     Active Substance: PREDNISOLONE
     Indication: HODGKIN^S DISEASE
     Dosage: 40 MG/M2 (80 MG) DAY 1?14, DAILY (40 MG/M2,1 IN 1 D)
     Route: 065
     Dates: start: 20160113, end: 20160126
  24. VALSARTAN. [Suspect]
     Active Substance: VALSARTAN
     Route: 065
     Dates: start: 20150415
  25. LYRICA [Concomitant]
     Active Substance: PREGABALIN
     Indication: PRODUCT USED FOR UNKNOWN INDICATION
     Dosage: 2X 75, 1X DAILY (MORNING), START DATE: FEB/MAR 2016
     Route: 065
  26. PANTOZOLE [Concomitant]
     Active Substance: PANTOPRAZOLE SODIUM
     Dosage: 40 MG, QD (40 MG,1 IN 1 D)
     Route: 065
  27. DIPIDOLOR [Suspect]
     Active Substance: PIRITRAMIDE
     Indication: BACK PAIN
  28. GRANOCYTE [Suspect]
     Active Substance: LENOGRASTIM
     Dosage: 1X 34, QD, 1X DAILY
     Route: 065
     Dates: start: 20160120, end: 201601
  29. PALLADON [Concomitant]
     Active Substance: HYDROMORPHONE
     Indication: PRODUCT USED FOR UNKNOWN INDICATION
     Route: 065
  30. BACLOFEN. [Concomitant]
     Active Substance: BACLOFEN
     Dosage: 200 UG/20 MG VIA PUMP 200 MCG
     Route: 058
  31. BACLOFEN. [Concomitant]
     Active Substance: BACLOFEN
     Route: 065
     Dates: start: 20170704, end: 20170712
  32. TRANXILIUM [Concomitant]
     Active Substance: CLORAZEPATE DIPOTASSIUM
     Dosage: 1X 10 MG, BID, 2X DAILY (MORNING AND EVENING) (10 MG,2 IN 1 D)
     Route: 065
  33. MOVICOLON [Concomitant]
     Active Substance: POLYETHYLENE GLYCOL 3350\POTASSIUM CHLORIDE\SODIUM BICARBONATE\SODIUM CHLORIDE
     Indication: PRODUCT USED FOR UNKNOWN INDICATION
     Dosage: UNK, SACHET, 1X DAILY (MORNING) (1 IN 1 D
     Route: 065
  34. VALSARTAN. [Concomitant]
     Active Substance: VALSARTAN
     Indication: HYPERTENSION
     Route: 065
     Dates: start: 20130124
  35. CLEXANE [Concomitant]
     Active Substance: ENOXAPARIN SODIUM
     Indication: THROMBOSIS PROPHYLAXIS
     Route: 058
  36. CLONIDINE. [Concomitant]
     Active Substance: CLONIDINE
     Indication: PRODUCT USED FOR UNKNOWN INDICATION
     Dosage: (1X0.5 MG)
     Route: 065
  37. VALSARTAN/HYDROCHLORTHIAZID [Suspect]
     Active Substance: HYDROCHLOROTHIAZIDE\VALSARTAN
     Dosage: 16/12.5 MG
     Route: 065
     Dates: start: 201407, end: 201807
  38. VALSARTAN/HYDROCHLORTHIAZID [Suspect]
     Active Substance: HYDROCHLOROTHIAZIDE\VALSARTAN
     Route: 065
     Dates: start: 20170112
  39. VALSARTAN HEXAL COMP [Suspect]
     Active Substance: HYDROCHLOROTHIAZIDE\VALSARTAN
     Indication: HYPERTENSION
     Route: 065
     Dates: start: 20160427
  40. VALSARTAN HEXAL COMP [Suspect]
     Active Substance: HYDROCHLOROTHIAZIDE\VALSARTAN
     Dosage: 1 DF, QD (IN MORNING 1?0?0)
     Route: 065
     Dates: start: 201407, end: 201407
  41. PARACETAMOL [Suspect]
     Active Substance: ACETAMINOPHEN
     Indication: PRODUCT USED FOR UNKNOWN INDICATION
     Route: 065
  42. BACLOFEN. [Suspect]
     Active Substance: BACLOFEN
     Indication: PRODUCT USED FOR UNKNOWN INDICATION
     Route: 065
  43. VALSARTAN. [Suspect]
     Active Substance: VALSARTAN
     Route: 065
     Dates: start: 20160424
  44. VALSARTAN. [Suspect]
     Active Substance: VALSARTAN
     Route: 065
     Dates: start: 20160804
  45. VALSARTAN. [Suspect]
     Active Substance: VALSARTAN
     Route: 065
     Dates: start: 20150611
  46. LYRICA [Concomitant]
     Active Substance: PREGABALIN
     Dosage: 1X 150, 2X DAILY (MORNING AND EVENING)
     Route: 065
     Dates: end: 2016
  47. DIAZEPAM. [Concomitant]
     Active Substance: DIAZEPAM
     Indication: PRODUCT USED FOR UNKNOWN INDICATION
     Route: 065
     Dates: start: 20150608
  48. TRANXILIUM [Concomitant]
     Active Substance: CLORAZEPATE DIPOTASSIUM
     Indication: PRODUCT USED FOR UNKNOWN INDICATION
     Dosage: 1X 15 MG, QD, 1X DAILY (EVENING OR NIGHT) (15 MG,1 IN 1 D)
     Route: 065
  49. PANTOZOLE [Concomitant]
     Active Substance: PANTOPRAZOLE SODIUM
     Indication: HYPERTENSION
     Dosage: 1X 40, 1X DAILY (MORNING) (1 IN 1 D)
     Route: 065
  50. LEVOTHYROXINE. [Concomitant]
     Active Substance: LEVOTHYROXINE
     Indication: PRODUCT USED FOR UNKNOWN INDICATION
     Route: 065
  51. VALSARTAN HEXAL COMP [Suspect]
     Active Substance: HYDROCHLOROTHIAZIDE\VALSARTAN
     Route: 065
     Dates: start: 20150611
  52. VALSARTAN. [Suspect]
     Active Substance: VALSARTAN
     Indication: HYPERTENSION
     Dosage: DOSE 80
     Route: 065
     Dates: start: 201407, end: 201410
  53. VALSARTAN. [Suspect]
     Active Substance: VALSARTAN
     Route: 065
     Dates: start: 20140707
  54. VALSARTAN. [Suspect]
     Active Substance: VALSARTAN
     Dosage: 160/12.5
     Route: 065
     Dates: start: 201407, end: 201410
  55. VALSARTAN. [Suspect]
     Active Substance: VALSARTAN
     Route: 065
     Dates: start: 20150102
  56. LYRICA [Concomitant]
     Active Substance: PREGABALIN
     Dosage: 1X 150, 1X, STOP DATE: FEB/MAR 2016
     Route: 065
     Dates: end: 2016
  57. MORPHINE [Concomitant]
     Active Substance: MORPHINE
     Indication: PAIN
     Route: 065
  58. VALSACOR COMP [Concomitant]
     Active Substance: HYDROCHLOROTHIAZIDE\VALSARTAN
     Indication: HYPERTENSION
     Route: 065
     Dates: start: 20170411
  59. VALSACOR COMP [Concomitant]
     Active Substance: HYDROCHLOROTHIAZIDE\VALSARTAN
     Route: 065
     Dates: start: 20170725
  60. BACLOFEN. [Concomitant]
     Active Substance: BACLOFEN
     Indication: PRODUCT USED FOR UNKNOWN INDICATION
     Dosage: 200 UG/20 MG VIA PUMP
     Route: 058
  61. PANTOZOLE [Concomitant]
     Active Substance: PANTOPRAZOLE SODIUM
     Dosage: 1X 40, 1X DAILY (EVENING) (1 D)
     Route: 065
  62. CLONIDINE. [Concomitant]
     Active Substance: CLONIDINE
     Dosage: 0.15 UG, BID (1?0?1 IN MORNINGA AND EVENING) (0.3 MCG,1 IN 1 D)
     Route: 065
  63. VIGANTOLETTEN [Concomitant]
     Active Substance: CHOLECALCIFEROL
     Indication: PRODUCT USED FOR UNKNOWN INDICATION
     Route: 048
  64. ENDOXAN 1G [Suspect]
     Active Substance: CYCLOPHOSPHAMIDE
     Indication: HODGKIN^S DISEASE
     Route: 065
     Dates: start: 20160113
  65. DOXIL [Suspect]
     Active Substance: DOXORUBICIN HYDROCHLORIDE
     Indication: HODGKIN^S DISEASE
     Dosage: DAY 1 AND 15 (25 MG/M2)
     Route: 065
     Dates: start: 20151027, end: 201512
  66. VALSARTAN HEXAL COMP [Suspect]
     Active Substance: HYDROCHLOROTHIAZIDE\VALSARTAN
     Dosage: 1 DF, QD (IN MORNING 1?0?0)
     Route: 065
     Dates: start: 201410, end: 201704
  67. VALSARTAN HEXAL COMP [Suspect]
     Active Substance: HYDROCHLOROTHIAZIDE\VALSARTAN
     Route: 065
     Dates: start: 201407
  68. VINCRISTINE [Suspect]
     Active Substance: VINCRISTINE
     Indication: HODGKIN^S DISEASE
     Dosage: 2 MG ABSOLUTE, DAY 8 (2 MG)
     Route: 065
     Dates: start: 20160120
  69. DIPIDOLOR [Suspect]
     Active Substance: PIRITRAMIDE
     Indication: PAIN IN EXTREMITY
     Route: 065
     Dates: start: 20150608
  70. VALSARTAN. [Suspect]
     Active Substance: VALSARTAN
     Route: 065
     Dates: start: 20140707
  71. GRANOCYTE [Suspect]
     Active Substance: LENOGRASTIM
     Indication: NEUTROPENIA
     Dosage: 1X 34, QD, 1X DAILY
     Route: 065
     Dates: start: 20160203, end: 20160205
  72. LYRICA [Concomitant]
     Active Substance: PREGABALIN
     Dosage: 1X 75, 1X DAILY (EVENING), START DATE: FEB/MAR 2016
     Route: 065
     Dates: start: 2016
  73. COTRIMOX FORTE [Concomitant]
     Active Substance: SULFAMETHOXAZOLE\TRIMETHOPRIM
     Indication: PNEUMONIA
     Dosage: SATURDAY AND SUNDAY (1 DOSAGE FORMS,2 IN 1 D)
     Route: 065
  74. BACLOFEN. [Concomitant]
     Active Substance: BACLOFEN
     Route: 065
     Dates: start: 20180102
  75. VALSARTAN. [Concomitant]
     Active Substance: VALSARTAN
     Route: 065
     Dates: start: 201301
  76. CITALOPRAM [Concomitant]
     Active Substance: CITALOPRAM HYDROBROMIDE
     Indication: PRODUCT USED FOR UNKNOWN INDICATION
     Dosage: 1X 20, 1X DAILY (MORNING) (1 D)
     Route: 065
  77. COTRIMOX [Concomitant]
     Active Substance: SULFAMETHOXAZOLE\TRIMETHOPRIM
     Indication: PRODUCT USED FOR UNKNOWN INDICATION
     Route: 065
  78. VALSARTAN HEXAL COMP [Suspect]
     Active Substance: HYDROCHLOROTHIAZIDE\VALSARTAN
     Route: 065
     Dates: start: 20150102
  79. PROCARBAZINE [Suspect]
     Active Substance: PROCARBAZINE
     Indication: HODGKIN^S DISEASE
     Dosage: 100 MG/M2 (200 MG), DAY 1?7, DAILY
     Route: 065
     Dates: start: 20190113, end: 20190119
  80. GRANOCYTE [Suspect]
     Active Substance: LENOGRASTIM
     Route: 065
     Dates: start: 201511, end: 201511
  81. MOTILIUM [Concomitant]
     Active Substance: DOMPERIDONE
     Dosage: 10 MG, ONCE IN THE MORNING, NOON AND EVENING) (10 MG)
     Route: 048
  82. VALSACOR COMP [Concomitant]
     Active Substance: HYDROCHLOROTHIAZIDE\VALSARTAN
     Route: 065
     Dates: start: 201704, end: 2017
  83. BACLOFEN. [Concomitant]
     Active Substance: BACLOFEN
     Route: 065
     Dates: start: 20180228
  84. PALLADON [Concomitant]
     Active Substance: HYDROMORPHONE
     Indication: PRODUCT USED FOR UNKNOWN INDICATION
     Dosage: (16 MG,1 IN 1 D)
     Route: 065
     Dates: start: 201511

REACTIONS (68)
  - Hepatic steatosis [Unknown]
  - Hypokinesia [Not Recovered/Not Resolved]
  - Muscle spasticity [Unknown]
  - Lymphadenopathy [Recovering/Resolving]
  - Back pain [Recovering/Resolving]
  - Hyperpyrexia [Unknown]
  - Urinary tract infection [Unknown]
  - Tachycardia [Unknown]
  - Intervertebral disc disorder [Unknown]
  - Inguinal hernia [Unknown]
  - Lung disorder [Unknown]
  - Anaesthesia [Recovering/Resolving]
  - Somnolence [Unknown]
  - Pyrexia [Recovered/Resolved]
  - Hodgkin^s disease [Unknown]
  - Abdominal tenderness [Unknown]
  - Dysphagia [Unknown]
  - Pulmonary congestion [Unknown]
  - Obesity [Unknown]
  - Fall [Unknown]
  - Splenomegaly [Unknown]
  - Red blood cell sedimentation rate increased [Unknown]
  - Hyperventilation [Unknown]
  - Dyspnoea [Recovering/Resolving]
  - Pyrexia [Recovered/Resolved]
  - Candida infection [Unknown]
  - Arthralgia [Unknown]
  - Bone pain [Recovering/Resolving]
  - Drug abuse [Unknown]
  - Sleep apnoea syndrome [Unknown]
  - Uterine enlargement [Unknown]
  - Viral infection [Unknown]
  - Dysaesthesia [Unknown]
  - Cough [Unknown]
  - Hyperhidrosis [Unknown]
  - Inflammation [Recovering/Resolving]
  - Basal ganglion degeneration [Unknown]
  - Speech disorder [Unknown]
  - Monoplegia [Unknown]
  - Sleep disorder [Unknown]
  - Klebsiella infection [Unknown]
  - Pneumonia [Unknown]
  - Neutropenia [Recovering/Resolving]
  - Hypoaesthesia [Recovering/Resolving]
  - Fall [Recovered/Resolved]
  - Vomiting [Unknown]
  - Nausea [Recovering/Resolving]
  - Fatigue [Unknown]
  - Respiratory failure [Unknown]
  - Pain [Recovering/Resolving]
  - Fatigue [Unknown]
  - Hypochromic anaemia [Unknown]
  - Dizziness [Unknown]
  - Tremor [Unknown]
  - Psychogenic seizure [Unknown]
  - Hypothyroidism [Unknown]
  - Tissue infiltration [Unknown]
  - Fall [Unknown]
  - Drug hypersensitivity [Unknown]
  - Spinal pain [Unknown]
  - General physical health deterioration [Unknown]
  - Anaphylactic reaction [Unknown]
  - Loss of consciousness [Unknown]
  - Neurological decompensation [Unknown]
  - Renal cyst [Unknown]
  - Pain in extremity [Unknown]
  - Headache [Unknown]
  - Myalgia [Unknown]

NARRATIVE: CASE EVENT DATE: 20150608
